FAERS Safety Report 18365416 (Version 1)
Quarter: 2020Q4

REPORT INFORMATION
  Report Type: Spontaneous
  Country: US (occurrence: US)
  Receive Date: 20201009
  Receipt Date: 20201009
  Transmission Date: 20210114
  Serious: No
  Sender: FDA-Public Use
  Company Number: US-PERRIGO-20US001566

PATIENT
  Age: 24 Year
  Sex: Female
  Weight: 53.06 kg

DRUGS (1)
  1. LEVONORGESTREL. [Suspect]
     Active Substance: LEVONORGESTREL
     Indication: ORAL CONTRACEPTION
     Dosage: 1.5 MG, SINGLE
     Route: 048
     Dates: start: 20200126, end: 20200126

REACTIONS (1)
  - Vomiting [Unknown]

NARRATIVE: CASE EVENT DATE: 20200127
